FAERS Safety Report 25056345 (Version 2)
Quarter: 2025Q2

REPORT INFORMATION
  Report Type: Report from Study
  Country: US (occurrence: US)
  Receive Date: 20250310
  Receipt Date: 20250508
  Transmission Date: 20250717
  Serious: Yes (Hospitalization)
  Sender: JOHNSON AND JOHNSON
  Company Number: US-JNJFOC-20250302819

PATIENT
  Age: 77 Year
  Sex: Female

DRUGS (7)
  1. SPRAVATO [Suspect]
     Active Substance: ESKETAMINE
     Indication: Depression
     Dosage: ?84 MG, 4 TOTAL DOSES?
     Route: 045
     Dates: start: 20241218, end: 20241230
  2. SPRAVATO [Suspect]
     Active Substance: ESKETAMINE
     Indication: Major depression
     Route: 045
     Dates: start: 20241216, end: 20241216
  3. CITALOPRAM [Suspect]
     Active Substance: CITALOPRAM
     Indication: Major depression
     Route: 048
     Dates: start: 20241210
  4. PREGABALIN [Concomitant]
     Active Substance: PREGABALIN
     Indication: Major depression
     Route: 048
     Dates: start: 20241001, end: 202501
  5. AMLODIPINE [Concomitant]
     Active Substance: AMLODIPINE BESYLATE
     Indication: Hypertension
     Route: 048
     Dates: start: 201904
  6. ELIQUIS [Concomitant]
     Active Substance: APIXABAN
     Indication: Thrombosis
     Route: 048
     Dates: start: 202410
  7. TEMAZEPAM [Concomitant]
     Active Substance: TEMAZEPAM
     Indication: Major depression
     Dosage: BED TIME
     Dates: start: 202409

REACTIONS (4)
  - Anxiety [Recovering/Resolving]
  - Feeling abnormal [Unknown]
  - Insomnia [Unknown]
  - Therapy non-responder [Unknown]

NARRATIVE: CASE EVENT DATE: 20241223
